FAERS Safety Report 7052282-8 (Version None)
Quarter: 2010Q4

REPORT INFORMATION
  Report Type: 
  Country: None (occurrence: None)
  Receive Date: 20101018
  Receipt Date: 20101018
  Transmission Date: 20110411
  Serious: Yes (Hospitalization)
  Sender: FDA-Public Use
  Company Number: None

PATIENT
  Age: 61 Year
  Sex: Female

DRUGS (2)
  1. CETUXIMAB [Suspect]
     Indication: HEAD AND NECK CANCER
     Dosage: 250 MG/M2 WEEKLY
     Dates: start: 20100330, end: 20101012
  2. SORAFENIB [Suspect]
     Indication: HEAD AND NECK CANCER
     Dosage: 400 MG BID
     Dates: start: 20100330, end: 20101013

REACTIONS (1)
  - TONGUE HAEMORRHAGE [None]
